FAERS Safety Report 5110080-6 (Version None)
Quarter: 2006Q3

REPORT INFORMATION
  Report Type: 
  Country: None (occurrence: None)
  Receive Date: 20060921
  Receipt Date: 20060914
  Transmission Date: 20061208
  Serious: Yes (Hospitalization)
  Sender: FDA-Public Use
  Company Number: SE-AVENTIS-200619593GDDC

PATIENT
  Age: 31 Year
  Sex: Female

DRUGS (11)
  1. FLAGYL ^AVENTIS^ [Suspect]
     Indication: CHOLECYSTITIS
     Dates: start: 20050901
  2. IMPUGAN [Suspect]
  3. TEGRETOL [Suspect]
  4. CIPROFLOXACIN [Suspect]
     Indication: CHOLECYSTITIS
  5. URSO FALK [Concomitant]
     Dosage: DOSE: 250 MG
  6. IMPORTAL [Concomitant]
     Route: 048
  7. KONAKION [Concomitant]
  8. SPIRONOLAKTON NYCOMED [Concomitant]
  9. TROMBYL [Concomitant]
  10. LAKTULOS APELSIN [Concomitant]
  11. TRIOBE [Concomitant]

REACTIONS (1)
  - NEUTROPENIA [None]
